FAERS Safety Report 7918438-4 (Version None)
Quarter: 2011Q4

REPORT INFORMATION
  Report Type: 
  Country: None (occurrence: None)
  Receive Date: 20111116
  Receipt Date: 20111112
  Transmission Date: 20120403
  Serious: Yes (Other)
  Sender: FDA-Public Use
  Company Number: CH-PFIZER INC-2011243322

PATIENT
  Sex: Female

DRUGS (1)
  1. VENLAFAXINE [Suspect]
     Dosage: 150 MG, UNK

REACTIONS (4)
  - TOXICITY TO VARIOUS AGENTS [None]
  - COMA [None]
  - DRUG DISPENSING ERROR [None]
  - CONVULSION [None]
